FAERS Safety Report 16513917 (Version 1)
Quarter: 2019Q3

REPORT INFORMATION
  Report Type: Spontaneous
  Country: US (occurrence: US)
  Receive Date: 20190701
  Receipt Date: 20190701
  Transmission Date: 20191004
  Serious: No
  Sender: FDA-Public Use
  Company Number: US-ROCHE-2278500

PATIENT

DRUGS (8)
  1. CELECOXIB. [Concomitant]
     Active Substance: CELECOXIB
     Indication: PAIN
     Dosage: (AFTER A MEAL) INCREASE TO BID FOR 7-10 DAYS PRN PAIN FLARES
     Route: 048
     Dates: start: 20180711
  2. CLINDAMYCIN. [Concomitant]
     Active Substance: CLINDAMYCIN
  3. ALLEGRA [Concomitant]
     Active Substance: FEXOFENADINE HYDROCHLORIDE
  4. PENICILLINS [Concomitant]
     Active Substance: PENICILLIN
  5. KLONOPIN [Suspect]
     Active Substance: CLONAZEPAM
     Indication: MUSCLE SPASMS
     Dosage: DURING DAY
     Route: 048
  6. VIOXX [Concomitant]
     Active Substance: ROFECOXIB
  7. SOMA [Concomitant]
     Active Substance: CARISOPRODOL
  8. KLONOPIN [Suspect]
     Active Substance: CLONAZEPAM
     Indication: ANXIETY
     Dosage: AT BED TIME
     Route: 048
     Dates: start: 20180612

REACTIONS (1)
  - Hypersensitivity [Unknown]
